FAERS Safety Report 9694275 (Version 1)
Quarter: 2013Q4

REPORT INFORMATION
  Report Type: Spontaneous
  Country: US (occurrence: US)
  Receive Date: 20131118
  Receipt Date: 20131118
  Transmission Date: 20140711
  Serious: No
  Sender: FDA-Public Use
  Company Number: US-PFIZER INC-2013327351

PATIENT
  Sex: Male

DRUGS (3)
  1. LYRICA [Suspect]
     Indication: POST HERPETIC NEURALGIA
     Dosage: 600 MG (TWO 300MG), IN A DAY
     Dates: start: 2013, end: 2013
  2. LYRICA [Suspect]
     Dosage: UNK
     Dates: start: 2013
  3. DEXILANT [Concomitant]
     Indication: GASTROOESOPHAGEAL REFLUX DISEASE
     Dosage: UNK, 2X/DAY

REACTIONS (5)
  - Dizziness [Unknown]
  - Euphoric mood [Unknown]
  - Therapeutic response unexpected [Unknown]
  - Pain [Unknown]
  - Disorientation [Unknown]
